FAERS Safety Report 5682995-1 (Version None)
Quarter: 2008Q1

REPORT INFORMATION
  Report Type: 
  Country: None (occurrence: None)
  Receive Date: 20080327
  Receipt Date: 20080317
  Transmission Date: 20080703
  Serious: Yes (Hospitalization)
  Sender: FDA-Public Use
  Company Number: HQWYE690105MAR07

PATIENT
  Sex: Male
  Weight: 51 kg

DRUGS (13)
  1. MYLOTARG [Suspect]
     Indication: ACUTE MYELOID LEUKAEMIA RECURRENT
     Route: 041
     Dates: start: 20060620, end: 20060620
  2. MYLOTARG [Suspect]
     Route: 041
     Dates: start: 20060704, end: 20060704
  3. ADALAT [Concomitant]
     Dosage: 20 MG DAILY
     Route: 048
     Dates: start: 20060620
  4. AMARYL [Concomitant]
     Dosage: 4 MG DAILY
     Route: 048
     Dates: start: 20060620
  5. FAMOTIDINE [Concomitant]
     Indication: PROPHYLAXIS
     Dosage: 40 MG DAILY
     Route: 048
     Dates: start: 20060620
  6. ONE-ALPHA [Concomitant]
     Indication: PROPHYLAXIS
     Dosage: 0.5 UG DAILY
     Route: 048
     Dates: start: 20060620
  7. BAKTAR [Concomitant]
     Indication: PROPHYLAXIS
     Dosage: 480 MG DAILY
     Route: 048
     Dates: start: 20060620
  8. MAGNESIUM OXIDE [Concomitant]
     Indication: PROPHYLAXIS
     Dosage: 4.5 G DAILY
     Route: 048
     Dates: start: 20060621
  9. CALCIUM LACTATE [Concomitant]
     Indication: PROPHYLAXIS
     Dosage: 0.5 G DAILY
     Route: 048
     Dates: start: 20060620
  10. ISCOTIN [Concomitant]
     Indication: PROPHYLAXIS
     Dosage: 300 MG DAILY
     Route: 048
     Dates: start: 20060620
  11. BASEN [Concomitant]
     Dosage: 1.8 MG DAILY
     Route: 048
     Dates: start: 20060620
  12. ITOROL [Concomitant]
     Dosage: 80 MG DAILY
     Route: 048
     Dates: start: 20060620
  13. CRAVIT [Concomitant]
     Indication: PROPHYLAXIS
     Dosage: 800 MG DAILY
     Route: 048
     Dates: start: 20060705, end: 20060720

REACTIONS (2)
  - FUNGAL INFECTION [None]
  - SEPSIS [None]
